FAERS Safety Report 12385728 (Version 4)
Quarter: 2016Q3

REPORT INFORMATION
  Report Type: Spontaneous
  Country: PT (occurrence: PT)
  Receive Date: 20160519
  Receipt Date: 20160727
  Transmission Date: 20161109
  Serious: Yes (Hospitalization, Other)
  Sender: FDA-Public Use
  Company Number: PT-009507513-1605PRT006930

PATIENT
  Age: 71 Year
  Sex: Female
  Weight: 100 kg

DRUGS (1)
  1. ESMERON [Suspect]
     Active Substance: ROCURONIUM BROMIDE
     Dosage: TOTAL DOSE: 250 MG

REACTIONS (6)
  - Adverse event [Unknown]
  - Hypoxia [Recovered/Resolved]
  - Neuromuscular blocking therapy [Recovered/Resolved]
  - Drug effect incomplete [Recovered/Resolved]
  - Hyperthermia [Unknown]
  - Wrong technique in product usage process [Unknown]
